FAERS Safety Report 20374584 (Version 6)
Quarter: 2025Q4

REPORT INFORMATION
  Report Type: Spontaneous
  Country: US (occurrence: US)
  Receive Date: 20220125
  Receipt Date: 20251015
  Transmission Date: 20260117
  Serious: Yes (Other)
  Sender: PFIZER
  Company Number: US-PFIZER INC-202200071971

PATIENT
  Age: 72 Year
  Sex: Female

DRUGS (1)
  1. XELJANZ XR [Suspect]
     Active Substance: TOFACITINIB CITRATE
     Indication: Psoriasis
     Dosage: 11 MG, DAILY
     Route: 048

REACTIONS (7)
  - Drug dependence [Unknown]
  - Panic reaction [Unknown]
  - Arthralgia [Recovering/Resolving]
  - Pain [Unknown]
  - Joint stiffness [Recovering/Resolving]
  - Intentional product use issue [Unknown]
  - Off label use [Unknown]
